FAERS Safety Report 24231677 (Version 2)
Quarter: 2024Q3

REPORT INFORMATION
  Report Type: Spontaneous
  Country: JP (occurrence: JP)
  Receive Date: 20240821
  Receipt Date: 20240912
  Transmission Date: 20241017
  Serious: Yes (Hospitalization)
  Sender: AMGEN
  Company Number: JP-AMGEN-JPNSP2024165225

PATIENT
  Age: 85 Year
  Sex: Male

DRUGS (1)
  1. EVENITY [Suspect]
     Active Substance: ROMOSOZUMAB-AQQG
     Indication: Product used for unknown indication
     Dosage: 210 MILLIGRAM
     Route: 058

REACTIONS (2)
  - Aortic dissection [Unknown]
  - Fracture [Unknown]
